FAERS Safety Report 17398526 (Version 2)
Quarter: 2023Q1

REPORT INFORMATION
  Report Type: Spontaneous
  Country: US (occurrence: US)
  Receive Date: 20200210
  Receipt Date: 20230215
  Transmission Date: 20230418
  Serious: No
  Sender: FDA-Public Use
  Company Number: US-AMNEAL PHARMACEUTICALS-2019AMN00544

PATIENT
  Age: 53 Year
  Sex: Male

DRUGS (1)
  1. ACEBUTOLOL HYDROCHLORIDE [Suspect]
     Active Substance: ACEBUTOLOL HYDROCHLORIDE
     Indication: Ventricular extrasystoles
     Dosage: UNK
     Route: 065

REACTIONS (8)
  - Tachycardia [Unknown]
  - Insomnia [Unknown]
  - Condition aggravated [Unknown]
  - Chest discomfort [Unknown]
  - Drug ineffective [Unknown]
  - Ventricular extrasystoles [Unknown]
  - Product substitution issue [Unknown]
  - Product quality issue [Unknown]

NARRATIVE: CASE EVENT DATE: 20220807
